FAERS Safety Report 9876961 (Version 1)
Quarter: 2014Q1

REPORT INFORMATION
  Report Type: Spontaneous
  Country: US (occurrence: US)
  Receive Date: 20140206
  Receipt Date: 20140206
  Transmission Date: 20141002
  Serious: No
  Sender: FDA-Public Use
  Company Number: US-PFIZER INC-2014030419

PATIENT
  Age: 72 Year
  Sex: Female
  Weight: 63.49 kg

DRUGS (3)
  1. VERAPAMIL HCL [Suspect]
     Indication: HYPERTENSION
     Dosage: SPLITTING THE 240 MG TABLET INTO HALF ^ONCE^
     Route: 048
  2. LEVOTHYROXINE SODIUM [Concomitant]
     Indication: THYROID DISORDER
     Dosage: 75 UG, DAILY
  3. PROPRANOLOL [Concomitant]
     Indication: VENTRICULAR EXTRASYSTOLES
     Dosage: 10 MG, 2X/DAY

REACTIONS (4)
  - Malaise [Recovered/Resolved]
  - Heart rate increased [Recovered/Resolved]
  - Erythema [Recovered/Resolved]
  - Dizziness [Recovered/Resolved]
